FAERS Safety Report 10414456 (Version 1)
Quarter: 2014Q3

REPORT INFORMATION
  Report Type: Spontaneous
  Country: TR (occurrence: TR)
  Receive Date: 20140828
  Receipt Date: 20140828
  Transmission Date: 20150326
  Serious: Yes (Other)
  Sender: FDA-Public Use
  Company Number: TR-ACCORD-025588

PATIENT
  Age: 73 Year
  Sex: Male

DRUGS (3)
  1. CLOPIDOGREL [Suspect]
     Active Substance: CLOPIDOGREL BISULFATE
     Indication: CAROTID ARTERY STENOSIS
  2. ACETYLSALICYLIC ACID [Suspect]
     Active Substance: ASPIRIN
     Indication: CAROTID ARTERY STENOSIS
  3. HEPARIN [Concomitant]
     Active Substance: HEPARIN SODIUM
     Dosage: UNFRACTIONATED HEPARIN 75 U/KG TOTAL.

REACTIONS (4)
  - Paresis [Not Recovered/Not Resolved]
  - Dysarthria [Recovering/Resolving]
  - Drug resistance [Unknown]
  - Thrombosis in device [Recovering/Resolving]
